FAERS Safety Report 9152932 (Version 2)
Quarter: 2013Q1

REPORT INFORMATION
  Report Type: Spontaneous
  Country: JP (occurrence: JP)
  Receive Date: 20130307
  Receipt Date: 20130325
  Transmission Date: 20140127
  Serious: Yes (Other)
  Sender: FDA-Public Use
  Company Number: JP-BRACCO-006870

PATIENT
  Age: 38 Year
  Sex: Male

DRUGS (3)
  1. IOPAMIRON [Suspect]
     Indication: COMPUTERISED TOMOGRAM ABDOMEN
     Route: 042
     Dates: start: 20120519, end: 20120519
  2. FLOMOX [Suspect]
     Route: 048
     Dates: start: 20120521
  3. FIRSTCIN [Suspect]
     Dates: start: 20120521

REACTIONS (3)
  - Drug-induced liver injury [Unknown]
  - Dyspnoea [Unknown]
  - Abdominal pain [Unknown]
